FAERS Safety Report 9065788 (Version 1)
Quarter: 2013Q1

REPORT INFORMATION
  Report Type: Spontaneous
  Country: US (occurrence: US)
  Receive Date: 20130214
  Receipt Date: 20130214
  Transmission Date: 20140127
  Serious: Yes (Hospitalization)
  Sender: FDA-Public Use
  Company Number: US-JNJFOC-20130204636

PATIENT
  Age: 2 Year
  Sex: Male
  Weight: 12.25 kg

DRUGS (2)
  1. CHILDREN^S TYLENOL [Suspect]
     Indication: PYREXIA
     Dosage: 160MG/5ML, 1 TEASPOON EVERY 4-6 HOURS AS NEEDED
     Route: 048
     Dates: start: 20130118
  2. CHILDREN^S TYLENOL [Suspect]
     Indication: PYREXIA
     Route: 048
     Dates: end: 20130125

REACTIONS (1)
  - Convulsion [Unknown]
